FAERS Safety Report 8668116 (Version 2)
Quarter: 2013Q4

REPORT INFORMATION
  Report Type: Report from Study
  Country: DE (occurrence: DE)
  Receive Date: 20120717
  Receipt Date: 20131101
  Transmission Date: 20140711
  Serious: Yes (Other)
  Sender: FDA-Public Use
  Company Number: DE-ASTRAZENECA-2012SE48780

PATIENT
  Age: 1 Month
  Sex: 0

DRUGS (1)
  1. ZOLMITRIPTAN [Suspect]
     Route: 045

REACTIONS (3)
  - Overdose [Unknown]
  - Dyspnoea [Unknown]
  - Respiratory acidosis [Unknown]
